FAERS Safety Report 24307514 (Version 1)
Quarter: 2024Q3

REPORT INFORMATION
  Report Type: Spontaneous
  Country: US (occurrence: US)
  Receive Date: 20240911
  Receipt Date: 20240911
  Transmission Date: 20241017
  Serious: No
  Sender: CELLTRION
  Company Number: US-CELLTRION INC.-2024US019999

PATIENT

DRUGS (1)
  1. ZYMFENTRA [Suspect]
     Active Substance: INFLIXIMAB-DYYB
     Indication: Product used for unknown indication

REACTIONS (4)
  - Abdominal pain upper [Unknown]
  - Hot flush [Unknown]
  - Nausea [Unknown]
  - Product dose omission issue [Unknown]

NARRATIVE: CASE EVENT DATE: 20240816
